FAERS Safety Report 6940829-9 (Version None)
Quarter: 2010Q3

REPORT INFORMATION
  Report Type: 
  Country: None (occurrence: None)
  Receive Date: 20100825
  Receipt Date: 20100727
  Transmission Date: 20110219
  Serious: Yes (Other)
  Sender: FDA-Public Use
  Company Number: PHEH2009US17339

PATIENT
  Sex: Female

DRUGS (5)
  1. ZOMETA [Suspect]
     Indication: BREAST CANCER
  2. AMOXICILLIN [Concomitant]
     Dosage: 500 MG, QD
     Route: 048
  3. GEMZAR [Concomitant]
     Dosage: 1560 MG, QW2
  4. CHLORHEXIDINE GLUCONATE [Concomitant]
     Dosage: 473 ML, BID
     Route: 004
  5. HYDROMORPHONE [Concomitant]
     Dosage: 2 MG, PRN

REACTIONS (16)
  - ANHEDONIA [None]
  - ANXIETY [None]
  - ARTHRALGIA [None]
  - ARTHRITIS [None]
  - ASTHENIA [None]
  - BACK PAIN [None]
  - BALANCE DISORDER [None]
  - BONE DISORDER [None]
  - DEFORMITY [None]
  - DISCOMFORT [None]
  - EMOTIONAL DISTRESS [None]
  - GAIT DISTURBANCE [None]
  - MASTICATION DISORDER [None]
  - OSTEONECROSIS OF JAW [None]
  - OVERDOSE [None]
  - PAIN [None]
